FAERS Safety Report 22800636 (Version 4)
Quarter: 2023Q4

REPORT INFORMATION
  Report Type: Spontaneous
  Country: JP (occurrence: JP)
  Receive Date: 20230808
  Receipt Date: 20231220
  Transmission Date: 20240110
  Serious: Yes (Other)
  Sender: FDA-Public Use
  Company Number: JP-GUERBETG_JAPAN-JP-20230101

PATIENT
  Age: 40 Year
  Sex: Female
  Weight: 50 kg

DRUGS (2)
  1. LIPIODOL [Suspect]
     Active Substance: ETHIODIZED OIL
     Indication: Hysterosalpingogram
     Dates: start: 202210, end: 202210
  2. FERROUS SULFATE [Concomitant]
     Active Substance: FERROUS SULFATE
     Indication: Anaemia
     Route: 048

REACTIONS (5)
  - Venous intravasation [Unknown]
  - Product residue present [Unknown]
  - Urine iodine increased [Recovering/Resolving]
  - Hypothyroidism [Recovered/Resolved]
  - Maternal exposure before pregnancy [Unknown]
